FAERS Safety Report 18359269 (Version 1)
Quarter: 2020Q4

REPORT INFORMATION
  Report Type: Spontaneous
  Country: US (occurrence: US)
  Receive Date: 20201007
  Receipt Date: 20201007
  Transmission Date: 20210114
  Serious: No
  Sender: FDA-Public Use
  Company Number: None

PATIENT
  Age: 87 Year
  Sex: Male
  Weight: 67.59 kg

DRUGS (8)
  1. VITAMIN D2 1000UNITS [Concomitant]
  2. FINASTERIDE 5MG [Concomitant]
     Active Substance: FINASTERIDE
  3. WARFARIN 2.5MG [Concomitant]
     Active Substance: WARFARIN
  4. POTASSIUM 10 MEQ [Concomitant]
  5. LORAZEPAM 0.5MG [Concomitant]
     Active Substance: LORAZEPAM
  6. VITAMIN B12 1000MCG [Concomitant]
  7. FLUTICASONE 50MCG/ACTUATION [Concomitant]
  8. CAPECITABINE. [Suspect]
     Active Substance: CAPECITABINE
     Indication: PANCREATIC CARCINOMA
     Route: 048
     Dates: start: 20200921

REACTIONS (1)
  - Dyspnoea [None]

NARRATIVE: CASE EVENT DATE: 20201004
